FAERS Safety Report 16357591 (Version 3)
Quarter: 2019Q3

REPORT INFORMATION
  Report Type: Report from Study
  Country: FR (occurrence: FR)
  Receive Date: 20190527
  Receipt Date: 20190715
  Transmission Date: 20191004
  Serious: Yes (Hospitalization)
  Sender: FDA-Public Use
  Company Number: FR-ROCHE-2324328

PATIENT
  Age: 66 Year
  Sex: Female

DRUGS (8)
  1. BEVACIZUMAB. [Suspect]
     Active Substance: BEVACIZUMAB
     Indication: OVARIAN CANCER
     Dosage: LAST DOSE PRIOR TO EVENT ONSET ON 29/APR/2019 (15 MG/KG)
     Route: 042
     Dates: start: 20170310, end: 20190617
  2. CARBOPLATIN. [Suspect]
     Active Substance: CARBOPLATIN
     Indication: OVARIAN CANCER
     Dosage: AREA UNDER THE CONCENTRATION TIME CURVE (AUC) = 5, D1 (746 MILLIGRAM EVERY 1 CYCLE(S))?LAST DOSE PRI
     Route: 042
     Dates: start: 20170310, end: 20190617
  3. SOTALEX [Concomitant]
     Active Substance: SOTALOL
     Indication: MITRAL VALVE PROLAPSE
     Route: 065
     Dates: start: 19970106
  4. DAFLON [DIOSMIN;HESPERIDIN] [Concomitant]
     Indication: PAIN
     Route: 065
     Dates: start: 20190408
  5. BLINDED ATEZOLIZUMAB [Suspect]
     Active Substance: ATEZOLIZUMAB
     Indication: OVARIAN CANCER
     Dosage: LAST DOSE PRIOR TO EVENT ONSET ON 29/APR/2019
     Route: 042
     Dates: start: 20170310, end: 20190617
  6. LEVOTHYROX [Concomitant]
     Active Substance: LEVOTHYROXINE
     Indication: HYPOTHYROIDISM
     Route: 065
     Dates: start: 20181023
  7. PACLITAXEL. [Suspect]
     Active Substance: PACLITAXEL
     Indication: OVARIAN CANCER
     Dosage: 175 MILLIGRAM PER SQUARE METRE EVERY 1 CYCLE(S).?LAST DOSE PRIOR TO EVENT ONSET ON 21/JUN/2017
     Route: 042
     Dates: end: 20190617
  8. KETUM [Concomitant]
     Active Substance: KETOPROFEN
     Indication: PAIN
     Route: 065
     Dates: start: 20190408

REACTIONS (2)
  - Epilepsy [Recovered/Resolved]
  - Behaviour disorder [Recovered/Resolved]

NARRATIVE: CASE EVENT DATE: 20190505
